FAERS Safety Report 5313530-5 (Version None)
Quarter: 2007Q2

REPORT INFORMATION
  Report Type: 
  Country: None (occurrence: None)
  Receive Date: 20070501
  Receipt Date: 20060413
  Transmission Date: 20071010
  Serious: No
  Sender: FDA-Public Use
  Company Number: 2006UW06577

PATIENT
  Sex: Female

DRUGS (1)
  1. ENTOCORT EC [Suspect]
     Route: 048

REACTIONS (1)
  - BREAST CYST [None]
